FAERS Safety Report 13191808 (Version 1)
Quarter: 2017Q1

REPORT INFORMATION
  Report Type: Spontaneous
  Country: TH (occurrence: TH)
  Receive Date: 20170207
  Receipt Date: 20170207
  Transmission Date: 20170428
  Serious: Yes (Hospitalization, Other)
  Sender: FDA-Public Use
  Company Number: TH-ASTELLAS-2017US004361

PATIENT
  Age: 3 Year
  Sex: Female

DRUGS (7)
  1. PROGRAF [Suspect]
     Active Substance: TACROLIMUS\TACROLIMUS ANHYDROUS
     Indication: LIVER TRANSPLANT
     Dosage: UNK MG, UNKNOWN FREQ.
     Route: 048
     Dates: start: 201307, end: 201601
  2. PROGRAF [Suspect]
     Active Substance: TACROLIMUS\TACROLIMUS ANHYDROUS
     Dosage: 0.5 MG, ONCE DAILY
     Route: 048
     Dates: start: 20160517, end: 20160523
  3. PROGRAF [Suspect]
     Active Substance: TACROLIMUS\TACROLIMUS ANHYDROUS
     Indication: LIVER TRANSPLANT
     Route: 048
     Dates: start: 20160517, end: 20160523
  4. ADVAGRAF [Suspect]
     Active Substance: TACROLIMUS
     Indication: LIVER TRANSPLANT
     Route: 048
     Dates: start: 20161226
  5. PROGRAF [Suspect]
     Active Substance: TACROLIMUS\TACROLIMUS ANHYDROUS
     Route: 048
     Dates: start: 20160524, end: 201605
  6. PROGRAF [Suspect]
     Active Substance: TACROLIMUS\TACROLIMUS ANHYDROUS
     Indication: LIVER TRANSPLANT
     Dosage: 1 MG (DAILY DOSE), TWICE DAILY
     Route: 048
     Dates: start: 20160126, end: 20160516
  7. PROGRAF [Suspect]
     Active Substance: TACROLIMUS\TACROLIMUS ANHYDROUS
     Route: 048
     Dates: start: 20160524, end: 201605

REACTIONS (7)
  - Drug ineffective [Not Recovered/Not Resolved]
  - Off label use [Unknown]
  - Drug ineffective [Unknown]
  - Febrile convulsion [Unknown]
  - Treatment noncompliance [Unknown]
  - Immunosuppressant drug level decreased [Not Recovered/Not Resolved]
  - Immunosuppressant drug level decreased [Unknown]

NARRATIVE: CASE EVENT DATE: 201605
